FAERS Safety Report 21966349 (Version 1)
Quarter: 2023Q1

REPORT INFORMATION
  Report Type: Spontaneous
  Country: US (occurrence: US)
  Receive Date: 20230208
  Receipt Date: 20230208
  Transmission Date: 20230417
  Serious: No
  Sender: FDA-Public Use
  Company Number: US-Blueprint Medicines Corporation-SP-US-2023-000214

PATIENT
  Sex: Female

DRUGS (1)
  1. AYVAKIT [Suspect]
     Active Substance: AVAPRITINIB
     Indication: Malignant mast cell neoplasm
     Route: 065

REACTIONS (6)
  - Vomiting [Recovering/Resolving]
  - Memory impairment [Recovering/Resolving]
  - Speech disorder [Recovering/Resolving]
  - Balance disorder [Recovering/Resolving]
  - Tinnitus [Recovering/Resolving]
  - Alopecia [Recovering/Resolving]
